FAERS Safety Report 12221363 (Version 1)
Quarter: 2016Q1

REPORT INFORMATION
  Report Type: Spontaneous
  Country: US (occurrence: None)
  Receive Date: 20160329
  Receipt Date: 20160329
  Transmission Date: 20160526
  Serious: Yes (Life-Threatening, Disabling)
  Sender: FDA-Public Use
  Company Number: None

PATIENT
  Age: 58 Year
  Sex: Female
  Weight: 83.92 kg

DRUGS (12)
  1. PROPOFOL. [Suspect]
     Active Substance: PROPOFOL
     Indication: ANAESTHESIA
     Route: 042
     Dates: start: 20151117
  2. DIAZAPAM [Concomitant]
  3. MANGANESE [Concomitant]
     Active Substance: MANGANESE\MANGANESE CHLORIDE
  4. COPPER [Concomitant]
     Active Substance: COPPER
  5. FLONASE [Concomitant]
     Active Substance: FLUTICASONE PROPIONATE
  6. MAGNESIUM [Concomitant]
     Active Substance: MAGNESIUM
  7. ZINC [Concomitant]
     Active Substance: ZINC\ZINC CHLORIDE
  8. PROGESTERONE. [Concomitant]
     Active Substance: PROGESTERONE
  9. CALCIUM CITRATE WITH VITAMIN D [Concomitant]
     Active Substance: CALCIUM CITRATE\VITAMIN D
  10. VALIUM [Concomitant]
     Active Substance: DIAZEPAM
  11. ESTRADIOL. [Concomitant]
     Active Substance: ESTRADIOL
  12. IBUPROFEN. [Concomitant]
     Active Substance: IBUPROFEN

REACTIONS (14)
  - Heart rate increased [None]
  - Chills [None]
  - Post procedural complication [None]
  - Heart rate decreased [None]
  - Cardiac disorder [None]
  - Tremor [None]
  - Dizziness [None]
  - Asthenia [None]
  - Activities of daily living impaired [None]
  - Malaise [None]
  - Chest pain [None]
  - Tinnitus [None]
  - Heart rate irregular [None]
  - Back pain [None]

NARRATIVE: CASE EVENT DATE: 20151117
